FAERS Safety Report 16377645 (Version 1)
Quarter: 2019Q2

REPORT INFORMATION
  Report Type: Spontaneous
  Country: CN (occurrence: CN)
  Receive Date: 20190531
  Receipt Date: 20190531
  Transmission Date: 20190711
  Serious: Yes (Other)
  Sender: FDA-Public Use
  Company Number: CN-ASTRAZENECA-2019SE77643

PATIENT
  Age: 45 Year
  Sex: Female

DRUGS (1)
  1. GEFITINIB. [Suspect]
     Active Substance: GEFITINIB
     Indication: LUNG ADENOCARCINOMA
     Route: 048
     Dates: start: 201611

REACTIONS (4)
  - Metastases to meninges [Recovering/Resolving]
  - Malignant neoplasm progression [Recovering/Resolving]
  - Metastases to central nervous system [Recovering/Resolving]
  - Drug resistance [Recovering/Resolving]

NARRATIVE: CASE EVENT DATE: 201709
